FAERS Safety Report 13553316 (Version 1)
Quarter: 2017Q2

REPORT INFORMATION
  Report Type: Spontaneous
  Country: US (occurrence: US)
  Receive Date: 20170517
  Receipt Date: 20170517
  Transmission Date: 20170830
  Serious: Yes (Other)
  Sender: FDA-Public Use
  Company Number: US-APOTEX-2017AP012085

PATIENT
  Age: 78 Year
  Sex: Female

DRUGS (1)
  1. KETOROLAC TROMETHAMINE INJECTION USP [Suspect]
     Active Substance: KETOROLAC TROMETHAMINE
     Indication: PROCEDURAL PAIN
     Dosage: 15 MG, Q.6H LESS THAN OR EQUAL TO 5 DAYS POST SURGERY
     Route: 042

REACTIONS (1)
  - Cardiac failure congestive [Unknown]
